FAERS Safety Report 15244310 (Version 1)
Quarter: 2018Q3

REPORT INFORMATION
  Report Type: Report from Study
  Country: TR (occurrence: TR)
  Receive Date: 20180806
  Receipt Date: 20180806
  Transmission Date: 20181010
  Serious: Yes (Other)
  Sender: FDA-Public Use
  Company Number: TR-MYLANLABS-2018M1058290

PATIENT
  Age: 3 Year
  Sex: Male

DRUGS (3)
  1. KETAMINE [Suspect]
     Active Substance: KETAMINE
     Indication: SEDATION
     Route: 042
  2. MIDAZOLAM [Interacting]
     Active Substance: MIDAZOLAM HYDROCHLORIDE
     Indication: PREMEDICATION
     Dosage: UNK
     Route: 050
  3. PROPOFOL. [Interacting]
     Active Substance: PROPOFOL
     Indication: SEDATION
     Route: 042

REACTIONS (2)
  - Drug interaction [Recovering/Resolving]
  - Oxygen saturation decreased [Recovering/Resolving]
